FAERS Safety Report 6892694-6 (Version None)
Quarter: 2010Q3

REPORT INFORMATION
  Report Type: 
  Country: None (occurrence: None)
  Receive Date: 20100731
  Receipt Date: 20080903
  Transmission Date: 20110219
  Serious: No
  Sender: FDA-Public Use
  Company Number: US-PFIZER INC-2008042123

PATIENT
  Sex: Female
  Weight: 77.11 kg

DRUGS (8)
  1. GABAPENTIN [Suspect]
     Indication: NEURALGIA
     Dates: start: 20080408, end: 20080502
  2. GABAPENTIN [Suspect]
     Indication: ARTHRITIS
  3. ALPHAGAN [Concomitant]
  4. GLIPIZIDE [Concomitant]
  5. LISINOPRIL [Concomitant]
  6. TRIAMTERENE [Concomitant]
  7. ATENOLOL [Concomitant]
  8. COLAZAL [Concomitant]

REACTIONS (6)
  - ERYTHEMA [None]
  - GAIT DISTURBANCE [None]
  - MALAISE [None]
  - NECK PAIN [None]
  - OEDEMA PERIPHERAL [None]
  - PAIN IN EXTREMITY [None]
